FAERS Safety Report 5361573-8 (Version None)
Quarter: 2007Q2

REPORT INFORMATION
  Report Type: 
  Country: None (occurrence: None)
  Receive Date: 20070619
  Receipt Date: 20070608
  Transmission Date: 20071010
  Serious: Yes (Hospitalization)
  Sender: FDA-Public Use
  Company Number: PHBS2007JP09841

PATIENT
  Sex: Female

DRUGS (4)
  1. COMTAN [Suspect]
     Indication: PARKINSON'S DISEASE
     Dosage: 400 MG7D
     Route: 048
     Dates: start: 20070519, end: 20070529
  2. ADONA [Concomitant]
     Dosage: 90 MG/D
     Route: 048
  3. DEPAS [Concomitant]
     Dosage: 1 MG/D
     Route: 048
  4. FP [Concomitant]
     Dosage: 2.5 MG/D
     Route: 048

REACTIONS (7)
  - COUGH [None]
  - EYE PAIN [None]
  - PNEUMONIA [None]
  - PRODUCTIVE COUGH [None]
  - RHINALGIA [None]
  - RHINORRHOEA [None]
  - VITREOUS FLOATERS [None]
